FAERS Safety Report 14396921 (Version 1)
Quarter: 2018Q1

REPORT INFORMATION
  Report Type: Spontaneous
  Country: US (occurrence: US)
  Receive Date: 20180116
  Receipt Date: 20180116
  Transmission Date: 20180509
  Serious: No
  Sender: FDA-Public Use
  Company Number: US-ALLERGAN-1752340US

PATIENT
  Sex: Female

DRUGS (1)
  1. BOTOX [Suspect]
     Active Substance: ONABOTULINUMTOXINA
     Indication: MIGRAINE
     Dosage: UNK, SINGLE
     Route: 030
     Dates: start: 201707, end: 201707

REACTIONS (6)
  - Myalgia [Unknown]
  - Muscle spasms [Unknown]
  - Speech disorder [Unknown]
  - Neck pain [Unknown]
  - Muscular weakness [Unknown]
  - Dysphagia [Unknown]
